FAERS Safety Report 18620153 (Version 1)
Quarter: 2020Q4

REPORT INFORMATION
  Report Type: Spontaneous
  Country: US (occurrence: US)
  Receive Date: 20201215
  Receipt Date: 20201215
  Transmission Date: 20210114
  Serious: No
  Sender: FDA-Public Use
  Company Number: US-PERRIGO-20US015397

PATIENT
  Age: 45 Year
  Sex: Female
  Weight: 71.2 kg

DRUGS (1)
  1. TIOCONAZOLE. [Suspect]
     Active Substance: TIOCONAZOLE
     Indication: VULVOVAGINAL MYCOTIC INFECTION
     Dosage: 300 MG, SINGLE
     Route: 067
     Dates: start: 20201019, end: 20201019

REACTIONS (5)
  - Vulvovaginal swelling [Recovered/Resolved]
  - Vulvovaginal pain [Recovering/Resolving]
  - Drug ineffective [Unknown]
  - Vulvovaginal discomfort [Recovering/Resolving]
  - Vulvovaginal burning sensation [Not Recovered/Not Resolved]

NARRATIVE: CASE EVENT DATE: 20201019
